FAERS Safety Report 6650085-7 (Version None)
Quarter: 2010Q1

REPORT INFORMATION
  Report Type: 
  Country: None (occurrence: None)
  Receive Date: 20100322
  Receipt Date: 20100308
  Transmission Date: 20100710
  Serious: Yes (Death, Hospitalization)
  Sender: FDA-Public Use
  Company Number: 056-20484-10011114

PATIENT
  Age: 84 Year
  Sex: Female

DRUGS (16)
  1. INNOHEP [Suspect]
     Indication: PULMONARY EMBOLISM
     Dosage: SUBCUTANEOUS
     Route: 058
     Dates: start: 20091101, end: 20091206
  2. HUMIRA [Suspect]
     Indication: DRUG USE FOR UNKNOWN INDICATION
     Dosage: 5.7143 MG (40 MG, 1 IN 1 IN WK) SUBCUTANEOUS
     Route: 058
     Dates: start: 20081001, end: 20091101
  3. METHOTREXATE [Suspect]
     Indication: POLYARTHRITIS
     Dosage: SUBCUTANEOUS
     Route: 058
     Dates: start: 20061001, end: 20091101
  4. PREDNISONE [Suspect]
     Indication: POLYARTHRITIS
     Dosage: ORAL
     Route: 048
     Dates: start: 20061001, end: 20091206
  5. KARDEGIC (ACETYLSALICYLATE LYSINE) (160 MILIGRAM) [Suspect]
     Indication: DRUG USE FOR UNKNOWN INDICATION
     Dosage: ORAL
     Route: 048
     Dates: end: 20091206
  6. LANSOPRAZOLE [Suspect]
     Indication: DRUG USE FOR UNKNOWN INDICATION
     Dosage: ORAL
     Route: 048
     Dates: start: 20091101, end: 20091206
  7. PROTELOS (STRONTIUM) [Suspect]
     Indication: POLYARTHRITIS
     Dosage: ORAL
     Route: 048
     Dates: end: 20090701
  8. CALCIUM ACETATE (CALCIUM ACETATE) [Suspect]
     Indication: DRUG USE FOR UNKNOWN INDICATION
     Dosage: ORAL
     Route: 048
     Dates: end: 20091206
  9. VITAMIN D [Suspect]
     Indication: DRUG USE FOR UNKNOWN INDICATION
     Dosage: ORAL
     Route: 048
     Dates: end: 20091206
  10. TENORMIN [Suspect]
     Indication: DRUG USE FOR UNKNOWN INDICATION
     Dates: end: 20091206
  11. ENBREL [Concomitant]
  12. IPERTEN (MANIDIPINE HYDROCHLORIDE) [Concomitant]
  13. FOLIC ACID [Concomitant]
  14. ULTRACET [Concomitant]
  15. PANTOPRAZOLE SODIUM [Concomitant]
  16. ROCEPHIN [Concomitant]

REACTIONS (2)
  - PULMONARY TUBERCULOSIS [None]
  - TUBERCULOSIS GASTROINTESTINAL [None]
